FAERS Safety Report 9668793 (Version 2)
Quarter: 2013Q4

REPORT INFORMATION
  Report Type: Spontaneous
  Country: US (occurrence: US)
  Receive Date: 20131105
  Receipt Date: 20131106
  Transmission Date: 20140711
  Serious: Yes (Other)
  Sender: FDA-Public Use
  Company Number: US-TEVA-441587USA

PATIENT
  Age: 33 Year
  Sex: Female
  Weight: 75.36 kg

DRUGS (2)
  1. PARAGARD 380A [Suspect]
     Indication: CONTRACEPTION
     Route: 015
     Dates: start: 201110
  2. LOSARTAN [Concomitant]
     Indication: HYPERTENSION

REACTIONS (3)
  - Device dislocation [Not Recovered/Not Resolved]
  - Device expulsion [Not Recovered/Not Resolved]
  - Device expulsion [Not Recovered/Not Resolved]
